FAERS Safety Report 8528205 (Version 2)
Quarter: 2013Q4

REPORT INFORMATION
  Report Type: Spontaneous
  Country: CA (occurrence: CA)
  Receive Date: 20120424
  Receipt Date: 20131223
  Transmission Date: 20140711
  Serious: Yes (Hospitalization, Other)
  Sender: FDA-Public Use
  Company Number: CA-ELI_LILLY_AND_COMPANY-CA201204003527

PATIENT
  Age: 16 Year
  Sex: Male

DRUGS (5)
  1. STRATTERA [Suspect]
     Indication: ATTENTION DEFICIT/HYPERACTIVITY DISORDER
     Dosage: UNK, UNKNOWN
     Route: 048
     Dates: end: 20110916
  2. STRATTERA [Suspect]
     Indication: ANXIETY
  3. ROCALTROL [Suspect]
     Indication: HYPOPARATHYROIDISM
     Dosage: 0.5 UG, BID
     Route: 048
     Dates: start: 20090317, end: 20110928
  4. ROCALTROL [Suspect]
     Dosage: UNK, UNKNOWN
     Route: 048
     Dates: start: 20110930
  5. CONCERTA [Concomitant]
     Indication: ATTENTION DEFICIT/HYPERACTIVITY DISORDER
     Dosage: UNK UNK, UNKNOWN
     Route: 048
     Dates: end: 20110928

REACTIONS (8)
  - Blood calcium decreased [Recovered/Resolved]
  - Blood pressure increased [Recovered/Resolved]
  - Blood parathyroid hormone decreased [Recovering/Resolving]
  - Blood potassium decreased [Recovered/Resolved]
  - Pallor [Recovered/Resolved]
  - Headache [Recovered/Resolved]
  - Nausea [Recovered/Resolved]
  - Vomiting [Recovered/Resolved]
